FAERS Safety Report 15619783 (Version 1)
Quarter: 2018Q4

REPORT INFORMATION
  Report Type: Spontaneous
  Country: US (occurrence: US)
  Receive Date: 20181115
  Receipt Date: 20181115
  Transmission Date: 20190205
  Serious: No
  Sender: FDA-Public Use
  Company Number: US-ASTRAZENECA-2018SF41921

PATIENT
  Age: 24749 Day
  Sex: Female

DRUGS (1)
  1. NEXIUM [Suspect]
     Active Substance: ESOMEPRAZOLE MAGNESIUM
     Indication: GASTROOESOPHAGEAL REFLUX DISEASE
     Dosage: UNKNOWN
     Route: 065

REACTIONS (4)
  - Discomfort [Unknown]
  - Gastrooesophageal reflux disease [Unknown]
  - Adverse reaction [Unknown]
  - Epistaxis [Unknown]

NARRATIVE: CASE EVENT DATE: 20181023
